FAERS Safety Report 5740239-6 (Version None)
Quarter: 2008Q2

REPORT INFORMATION
  Report Type: 
  Country: None (occurrence: None)
  Receive Date: 20080516
  Receipt Date: 20080514
  Transmission Date: 20081010
  Serious: Yes (Hospitalization)
  Sender: FDA-Public Use
  Company Number: GB-BRISTOL-MYERS SQUIBB COMPANY-14100499

PATIENT
  Age: 57 Year
  Sex: Male
  Weight: 68 kg

DRUGS (3)
  1. REYATAZ [Suspect]
     Route: 048
     Dates: start: 20050429, end: 20080101
  2. TRUVADA [Concomitant]
     Dosage: DOSAGE FORM = TABLET,1 TABLET(EMTRICITABINE 200MG + TENOFOVIR DISOPROXIL 245MG)
     Route: 048
     Dates: start: 20050429, end: 20080101
  3. RITONAVIR [Concomitant]
     Route: 048
     Dates: start: 20050429, end: 20080101

REACTIONS (3)
  - LOSS OF CONSCIOUSNESS [None]
  - PNEUMONIA PNEUMOCOCCAL [None]
  - RENAL IMPAIRMENT [None]
